FAERS Safety Report 8008519-1 (Version None)
Quarter: 2011Q4

REPORT INFORMATION
  Report Type: 
  Country: None (occurrence: None)
  Receive Date: 20111227
  Receipt Date: 20111219
  Transmission Date: 20120403
  Serious: Yes (Death, Hospitalization)
  Sender: FDA-Public Use
  Company Number: CA-ROCHE-799437

PATIENT
  Sex: Female

DRUGS (14)
  1. ACETAMINOPHEN [Concomitant]
  2. OMEPRAZOLE [Concomitant]
  3. OXYCODONE HCL AND ACETAMINOPHEN [Concomitant]
  4. NOVOLIN 70/30 [Concomitant]
  5. CALCIUM CARBONATE [Concomitant]
  6. CYCLOSPORINE [Suspect]
     Indication: IMMUNOSUPPRESSION
     Route: 048
     Dates: start: 20070226, end: 20111125
  7. VITAMIN D [Concomitant]
  8. MYCOPHENOLATE MOFETIL (CELLCEPT) [Suspect]
     Indication: IMMUNOSUPPRESSION
     Route: 065
  9. TOBRADEX [Concomitant]
  10. AMLODIPINE [Concomitant]
  11. FUROSEMIDE [Concomitant]
  12. REPLAVITE [Concomitant]
  13. PREDNISOLONE [Suspect]
     Indication: IMMUNOSUPPRESSION
  14. KETOROLAC TROMETHAMINE [Concomitant]

REACTIONS (4)
  - LOCALISED INFECTION [None]
  - INTESTINAL ISCHAEMIA [None]
  - GANGRENE [None]
  - PERIPHERAL ISCHAEMIA [None]
